FAERS Safety Report 23591130 (Version 1)
Quarter: 2024Q1

REPORT INFORMATION
  Report Type: Spontaneous
  Country: US (occurrence: None)
  Receive Date: 20240301
  Receipt Date: 20240301
  Transmission Date: 20240409
  Serious: Yes (Other)
  Sender: FDA-Public Use
  Company Number: None

PATIENT
  Age: 68 Year
  Sex: Female
  Weight: 62.1 kg

DRUGS (25)
  1. XIIDRA [Suspect]
     Active Substance: LIFITEGRAST
     Indication: Dry eye
     Dosage: OTHER QUANTITY : 1 CONTAINER;?FREQUENCY : TWICE A DAY;?
     Route: 047
     Dates: start: 20240205, end: 20240220
  2. Cyclobenzaprint [Concomitant]
  3. FAMOTIDINE [Concomitant]
     Active Substance: FAMOTIDINE
  4. CLONIDINE [Concomitant]
     Active Substance: CLONIDINE
  5. L-Throxine [Concomitant]
  6. TOPIRAMATE [Concomitant]
     Active Substance: TOPIRAMATE
  7. TRAZODONE [Concomitant]
     Active Substance: TRAZODONE HYDROCHLORIDE
  8. HYDROCODONE [Concomitant]
     Active Substance: HYDROCODONE
  9. Genfibrozil [Concomitant]
  10. GABAPENTIN [Concomitant]
     Active Substance: GABAPENTIN
  11. ROSUVASTATIN [Concomitant]
     Active Substance: ROSUVASTATIN
  12. ZINC [Concomitant]
     Active Substance: PYRITHIONE ZINC\ZINC\ZINC CHLORIDE
  13. FOLIC ACID [Concomitant]
     Active Substance: FOLIC ACID
  14. VITAMIN D3 [Concomitant]
     Active Substance: CHOLECALCIFEROL
  15. PROBIOTICS NOS [Concomitant]
     Active Substance: PROBIOTICS NOS
  16. GARLIC OIL [Concomitant]
     Active Substance: GARLIC OIL
  17. LUTEIN [Concomitant]
     Active Substance: LUTEIN
  18. ZEAXANTHIN [Concomitant]
     Active Substance: ZEAXANTHIN
  19. FISH OIL [Concomitant]
     Active Substance: FISH OIL
  20. GUAIFENESIN [Concomitant]
     Active Substance: GUAIFENESIN
  21. VITAMINS [Concomitant]
     Active Substance: VITAMINS
  22. MAGNESIUM [Concomitant]
     Active Substance: MAGNESIUM
  23. VITAMIN B12 [Concomitant]
     Active Substance: CYANOCOBALAMIN
  24. BIOTIN [Concomitant]
     Active Substance: BIOTIN
  25. Beet Root + Cherry Extract [Concomitant]

REACTIONS (2)
  - Eye irritation [None]
  - Vision blurred [None]

NARRATIVE: CASE EVENT DATE: 20240205
